FAERS Safety Report 13779359 (Version 1)
Quarter: 2017Q3

REPORT INFORMATION
  Report Type: Other
  Country: GB (occurrence: IT)
  Receive Date: 20170721
  Receipt Date: 20170721
  Transmission Date: 20171127
  Serious: Yes (Other)
  Sender: FDA-Public Use
  Company Number: IT-INTERNATIONAL MEDICATION SYSTEMS, LIMITED-2023606

PATIENT

DRUGS (1)
  1. LIDOCAINE 2.5%, PRILOCAINE 2.5% [Suspect]
     Active Substance: LIDOCAINE\PRILOCAINE
     Indication: LOCAL ANAESTHESIA
     Route: 061

REACTIONS (3)
  - Methaemoglobinaemia [Recovered/Resolved]
  - Dose calculation error [Recovered/Resolved]
  - Cyanosis [Recovered/Resolved]
